FAERS Safety Report 20769466 (Version 12)
Quarter: 2022Q3

REPORT INFORMATION
  Report Type: Report from Study
  Country: CO (occurrence: None)
  Receive Date: 20220429
  Receipt Date: 20220725
  Transmission Date: 20221027
  Serious: Yes (Hospitalization)
  Sender: FDA-Public Use
  Company Number: CO-Eisai Medical Research-EC-2022-113806

PATIENT
  Age: 60 Year
  Sex: Male
  Weight: 69.5 kg

DRUGS (4)
  1. LENVATINIB [Suspect]
     Active Substance: LENVATINIB
     Indication: Clear cell renal cell carcinoma
     Dosage: STARTING DOSE 20 MG, FLUCTUATED DOSAGE
     Route: 048
     Dates: start: 20211216, end: 20220420
  2. PEMBROLIZUMAB [Suspect]
     Active Substance: PEMBROLIZUMAB
     Indication: Clear cell renal cell carcinoma
     Route: 042
     Dates: start: 20211216, end: 20220309
  3. PEMBROLIZUMAB [Suspect]
     Active Substance: PEMBROLIZUMAB
     Route: 042
     Dates: start: 20220630
  4. DIOVAN HCT [Concomitant]
     Active Substance: HYDROCHLOROTHIAZIDE\VALSARTAN
     Dates: start: 200201

REACTIONS (1)
  - Tumour fistulisation [Recovered/Resolved with Sequelae]

NARRATIVE: CASE EVENT DATE: 20220421
